FAERS Safety Report 4986377-7 (Version None)
Quarter: 2006Q2

REPORT INFORMATION
  Report Type: 
  Country: None (occurrence: None)
  Receive Date: 20060428
  Receipt Date: 20060426
  Transmission Date: 20061013
  Serious: Yes (Hospitalization)
  Sender: FDA-Public Use
  Company Number: FR-GLAXOSMITHKLINE-B0421317A

PATIENT
  Age: 15 Year
  Sex: Male

DRUGS (2)
  1. CLAMOXYL [Suspect]
     Dosage: 2G PER DAY
     Route: 048
     Dates: start: 20060217, end: 20060227
  2. NUREFLEX [Suspect]
     Dosage: 200MG THREE TIMES PER DAY
     Route: 048
     Dates: start: 20060217, end: 20060227

REACTIONS (8)
  - CHEST PAIN [None]
  - CONDITION AGGRAVATED [None]
  - COUGH [None]
  - DRUG INEFFECTIVE [None]
  - DYSPNOEA [None]
  - PLEURAL EFFUSION [None]
  - PLEURISY [None]
  - PYREXIA [None]
